FAERS Safety Report 12109937 (Version 1)
Quarter: 2016Q1

REPORT INFORMATION
  Report Type: Spontaneous
  Country: US (occurrence: None)
  Receive Date: 20160223
  Receipt Date: 20160223
  Transmission Date: 20160526
  Serious: No
  Sender: FDA-Public Use
  Company Number: None

PATIENT
  Age: 18 Year
  Sex: Female

DRUGS (1)
  1. FIRAZYR [Suspect]
     Active Substance: ICATIBANT ACETATE
     Route: 058
     Dates: start: 20150318

REACTIONS (2)
  - Needle issue [None]
  - Product packaging issue [None]

NARRATIVE: CASE EVENT DATE: 20160201
